FAERS Safety Report 8696561 (Version 4)
Quarter: 2012Q4

REPORT INFORMATION
  Report Type: 
  Country: US (occurrence: US)
  Receive Date: 20120801
  Receipt Date: 20121011
  Transmission Date: 20130627
  Serious: Yes (Hospitalization)
  Sender: FDA-Public Use
  Company Number: US-BAYER-2012-073865

PATIENT
  Age: 33 Year
  Sex: Female
  Weight: 113.38 kg

DRUGS (10)
  1. YAZ [Suspect]
     Dosage: UNK
  2. YASMIN [Suspect]
     Indication: PREMENSTRUAL SYNDROME
     Dosage: UNK
     Dates: start: 20010913, end: 200205
  3. YASMIN [Suspect]
     Indication: POLYCYSTIC OVARIES
  4. MIDRIN [Concomitant]
  5. NSAID^S [Concomitant]
  6. CLARITIN [Concomitant]
  7. ZITHROMAX [Concomitant]
  8. MOTRIN [Concomitant]
  9. COMBIVENT INHALER [Concomitant]
  10. ANTIBIOTICS [Concomitant]

REACTIONS (27)
  - Pulmonary embolism [None]
  - Pulmonary infarction [None]
  - Deep vein thrombosis [None]
  - Phlebitis [None]
  - Pain [None]
  - Injury [None]
  - General physical health deterioration [None]
  - Anxiety [None]
  - Emotional distress [None]
  - Muscle tightness [None]
  - Limb discomfort [None]
  - Chest pain [None]
  - Menstruation irregular [None]
  - Oedema peripheral [None]
  - Syncope [None]
  - Pain in extremity [None]
  - Muscle spasms [None]
  - Formication [None]
  - Hypoaesthesia [None]
  - Increased tendency to bruise [None]
  - Gingival bleeding [None]
  - Epistaxis [None]
  - Dyspnoea [None]
  - Dizziness [None]
  - Asthenia [None]
  - Fatigue [None]
  - Pain [None]
